FAERS Safety Report 4919752-7 (Version None)
Quarter: 2006Q1

REPORT INFORMATION
  Report Type: 
  Country: None (occurrence: None)
  Receive Date: 20060223
  Receipt Date: 20041117
  Transmission Date: 20060701
  Serious: Yes (Hospitalization)
  Sender: FDA-Public Use
  Company Number: 2004-11-0303

PATIENT
  Age: 25 Year
  Sex: Female

DRUGS (2)
  1. BUPRENORPHINE HCL [Suspect]
     Indication: DRUG USE FOR UNKNOWN INDICATION
     Dosage: DOSAGE UNKNOWN
     Route: 042
  2. HEROIN [Suspect]
     Indication: DRUG USE FOR UNKNOWN INDICATION
     Dosage: DOSAGE UNKNOWN
     Route: 042
     Dates: end: 20030227

REACTIONS (8)
  - COMA [None]
  - CONFUSIONAL STATE [None]
  - ENDOCARDITIS STAPHYLOCOCCAL [None]
  - INTENTIONAL DRUG MISUSE [None]
  - MENINGITIS [None]
  - MOTOR DYSFUNCTION [None]
  - PERICARDIAL EFFUSION [None]
  - SEPTIC EMBOLUS [None]
